FAERS Safety Report 19157578 (Version 1)
Quarter: 2021Q2

REPORT INFORMATION
  Report Type: Spontaneous
  Country: US (occurrence: US)
  Receive Date: 20210419
  Receipt Date: 20210419
  Transmission Date: 20210717
  Serious: No
  Sender: FDA-Public Use
  Company Number: None

PATIENT
  Age: 39 Year
  Sex: Female
  Weight: 92 kg

DRUGS (4)
  1. ANTIBIOTICS [Concomitant]
     Active Substance: UNSPECIFIED INGREDIENT
  2. KELP [Concomitant]
     Active Substance: KELP
  3. NEXPLANON [Suspect]
     Active Substance: ETONOGESTREL
  4. CETIRIZINE [Concomitant]
     Active Substance: CETIRIZINE HYDROCHLORIDE

REACTIONS (12)
  - Neuropathy peripheral [None]
  - Pain [None]
  - Tremor [None]
  - Implant site nerve injury [None]
  - Muscle spasms [None]
  - Grip strength decreased [None]
  - Pain in extremity [None]
  - Muscle fatigue [None]
  - Temperature intolerance [None]
  - Nerve compression [None]
  - Muscular weakness [None]
  - Musculoskeletal stiffness [None]

NARRATIVE: CASE EVENT DATE: 20210417
